FAERS Safety Report 21380488 (Version 1)
Quarter: 2022Q3

REPORT INFORMATION
  Report Type: Spontaneous
  Country: US (occurrence: None)
  Receive Date: 20220923
  Receipt Date: 20220923
  Transmission Date: 20221027
  Serious: Yes (Hospitalization)
  Sender: FDA-Public Use
  Company Number: None

PATIENT
  Age: 63 Year
  Sex: Male
  Weight: 75 kg

DRUGS (1)
  1. CETUXIMAB [Suspect]
     Active Substance: CETUXIMAB
     Indication: Tonsil cancer
     Route: 042
     Dates: start: 20110207, end: 20110207

REACTIONS (8)
  - Chills [None]
  - Chills [None]
  - Hypertension [None]
  - Stridor [None]
  - Heart rate increased [None]
  - Dizziness [None]
  - Infusion related reaction [None]
  - Pyrexia [None]

NARRATIVE: CASE EVENT DATE: 20110207
